FAERS Safety Report 6114707-1 (Version None)
Quarter: 2009Q1

REPORT INFORMATION
  Report Type: 
  Country: None (occurrence: None)
  Receive Date: 20090311
  Receipt Date: 20080131
  Transmission Date: 20090719
  Serious: No
  Sender: FDA-Public Use
  Company Number: US200801003764

PATIENT
  Age: 73 Year
  Sex: Male

DRUGS (5)
  1. GEMZAR [Suspect]
     Indication: PANCREATIC CARCINOMA RECURRENT
     Dosage: 750 MG/M2
     Dates: start: 20071105
  2. XELODA [Concomitant]
  3. CREON (AMYLASE, LIPASE, PANCREATIN, PROTEASE) [Concomitant]
  4. INSULIN (INSULIN) [Concomitant]
  5. WARFARIN SODIUM [Concomitant]

REACTIONS (6)
  - CHILLS [None]
  - EYELID OEDEMA [None]
  - LEUKOPENIA [None]
  - NEUTROPENIA [None]
  - OEDEMA PERIPHERAL [None]
  - PLATELET COUNT DECREASED [None]
